FAERS Safety Report 23911910 (Version 1)
Quarter: 2024Q2

REPORT INFORMATION
  Report Type: Spontaneous
  Country: US (occurrence: US)
  Receive Date: 20240528
  Receipt Date: 20240528
  Transmission Date: 20240715
  Serious: No
  Sender: FDA-Public Use
  Company Number: US-PERRIGO-23US012770

PATIENT
  Age: 38 Year
  Sex: Male
  Weight: 97.506 kg

DRUGS (1)
  1. MINOXIDIL [Suspect]
     Active Substance: MINOXIDIL
     Indication: Alopecia
     Dosage: 1/2 TO 1 CAPFUL, BID
     Route: 061
     Dates: start: 202301, end: 20230907

REACTIONS (3)
  - Application site exfoliation [Recovered/Resolved]
  - Application site dryness [Recovered/Resolved]
  - Incorrect dose administered [Unknown]

NARRATIVE: CASE EVENT DATE: 20230101
